FAERS Safety Report 4486621-9 (Version None)
Quarter: 2004Q4

REPORT INFORMATION
  Report Type: 
  Country: None (occurrence: None)
  Receive Date: 20041027
  Receipt Date: 20041021
  Transmission Date: 20050328
  Serious: Yes (Other)
  Sender: FDA-Public Use
  Company Number: PHRM2004FR03176

PATIENT
  Age: 57 Year
  Sex: Male

DRUGS (1)
  1. COTAREG [Suspect]
     Route: 048

REACTIONS (4)
  - FRACTURE [None]
  - HYPOTENSION [None]
  - MALAISE [None]
  - ROAD TRAFFIC ACCIDENT [None]
